FAERS Safety Report 15061078 (Version 1)
Quarter: 2018Q2

REPORT INFORMATION
  Report Type: Spontaneous
  Country: US (occurrence: US)
  Receive Date: 20180625
  Receipt Date: 20180625
  Transmission Date: 20180711
  Serious: No
  Sender: FDA-Public Use
  Company Number: US-ROCHE-2033123

PATIENT
  Sex: Female

DRUGS (6)
  1. IBRANCE [Suspect]
     Active Substance: PALBOCICLIB
     Route: 065
  2. IBRANCE [Suspect]
     Active Substance: PALBOCICLIB
     Indication: BREAST CANCER
     Route: 065
     Dates: start: 201706
  3. LETROZOLE. [Concomitant]
     Active Substance: LETROZOLE
  4. FASLODEX [Concomitant]
     Active Substance: FULVESTRANT
  5. IBRANCE [Suspect]
     Active Substance: PALBOCICLIB
     Route: 065
  6. CAPECITABINE. [Suspect]
     Active Substance: CAPECITABINE
     Indication: PRODUCT USED FOR UNKNOWN INDICATION
     Dosage: TWICE DAY FOR 3 WEEKS THEN 1 WEEK OFF
     Route: 065

REACTIONS (2)
  - Palmar-plantar erythrodysaesthesia syndrome [Unknown]
  - White blood cell count decreased [Unknown]
